FAERS Safety Report 22651068 (Version 1)
Quarter: 2023Q2

REPORT INFORMATION
  Report Type: Spontaneous
  Country: CZ (occurrence: None)
  Receive Date: 20230628
  Receipt Date: 20230628
  Transmission Date: 20230721
  Serious: Yes (Life-Threatening, Hospitalization, Other)
  Sender: FDA-Public Use
  Company Number: 2023A145824

PATIENT
  Age: 61 Year
  Sex: Male
  Weight: 102 kg

DRUGS (5)
  1. DAPAGLIFLOZIN [Suspect]
     Active Substance: DAPAGLIFLOZIN
     Indication: Type 2 diabetes mellitus
     Dosage: 10.0MG UNKNOWN
     Route: 048
     Dates: start: 20230602, end: 20230612
  2. EZETIMIBE [Concomitant]
     Active Substance: EZETIMIBE
     Indication: Hypercholesterolaemia
     Dosage: 10.0MG UNKNOWN
     Dates: end: 20230602
  3. ATORVASTATIN CALCIUM [Concomitant]
     Active Substance: ATORVASTATIN CALCIUM
     Indication: Hypercholesterolaemia
     Dosage: 20.0MG UNKNOWN
     Dates: end: 20230602
  4. GLUCOPHAGE [Concomitant]
     Active Substance: METFORMIN HYDROCHLORIDE
     Indication: Type 2 diabetes mellitus
     Dosage: IT WAS EXCLUDED DURING HOSPITALIZATION, THEN HE STARTED USING IT AGAIN IN DOSAGE 2X1000MG3000.0MG...
     Route: 048
     Dates: start: 2017, end: 20230612
  5. ZETOVAR [Concomitant]
     Indication: Hypercholesterolaemia
     Route: 048
     Dates: start: 20230602

REACTIONS (4)
  - Metabolic acidosis [Recovered/Resolved]
  - Dyspnoea at rest [Recovered/Resolved]
  - Decreased appetite [Recovered/Resolved]
  - Vomiting [Recovered/Resolved]

NARRATIVE: CASE EVENT DATE: 20230607
